FAERS Safety Report 8600286-3 (Version None)
Quarter: 2012Q3

REPORT INFORMATION
  Report Type: 
  Country: None (occurrence: None)
  Receive Date: 20120817
  Receipt Date: 20120813
  Transmission Date: 20120928
  Serious: No
  Sender: FDA-Public Use
  Company Number: US-BIOGENIDEC-2012BI018293

PATIENT
  Age: 57 Year
  Sex: Male

DRUGS (1)
  1. AVONEX [Suspect]
     Indication: MULTIPLE SCLEROSIS
     Route: 030
     Dates: start: 20120501

REACTIONS (18)
  - FEELING COLD [None]
  - LOSS OF CONTROL OF LEGS [None]
  - DYSSTASIA [None]
  - INFREQUENT BOWEL MOVEMENTS [None]
  - MALAISE [None]
  - BURNING SENSATION [None]
  - GAIT DISTURBANCE [None]
  - PAIN IN EXTREMITY [None]
  - RENAL PAIN [None]
  - HYPOAESTHESIA [None]
  - HYPERHIDROSIS [None]
  - BALANCE DISORDER [None]
  - MYALGIA [None]
  - URINE ODOUR ABNORMAL [None]
  - TOOTHACHE [None]
  - FEELING HOT [None]
  - HEADACHE [None]
  - DEPRESSION [None]
